FAERS Safety Report 9348359 (Version 2)
Quarter: 2013Q3

REPORT INFORMATION
  Report Type: Spontaneous
  Country: US (occurrence: US)
  Receive Date: 20130614
  Receipt Date: 20130702
  Transmission Date: 20140515
  Serious: No
  Sender: FDA-Public Use
  Company Number: US-PFIZER INC-2013175748

PATIENT
  Age: 74 Year
  Sex: Female
  Weight: 59.41 kg

DRUGS (2)
  1. TAPAZOLE [Suspect]
     Indication: THYROID DISORDER
     Dosage: 2.5 MG, 1X/DAY
     Route: 048
  2. TAPAZOLE [Suspect]
     Dosage: 2.5 MG, ALTERNATE DAY

REACTIONS (4)
  - Dysuria [Unknown]
  - Weight increased [Unknown]
  - Blood thyroid stimulating hormone decreased [Unknown]
  - Psychomotor hyperactivity [Unknown]
